FAERS Safety Report 23015217 (Version 3)
Quarter: 2023Q4

REPORT INFORMATION
  Report Type: Spontaneous
  Country: US (occurrence: US)
  Receive Date: 20231002
  Receipt Date: 20231018
  Transmission Date: 20240110
  Serious: Yes (Hospitalization, Disabling, Other)
  Sender: FDA-Public Use
  Company Number: US-MLMSERVICE-20230925-4559651-1

PATIENT
  Age: 42 Year
  Sex: Male
  Weight: 125 kg

DRUGS (3)
  1. EPINEPHRINE\LIDOCAINE HYDROCHLORIDE [Interacting]
     Active Substance: EPINEPHRINE\LIDOCAINE HYDROCHLORIDE
     Indication: Skin papilloma
     Dosage: 1:1 RATIO OF 1% LIDOCAINE AND EPINEPHRINE 1:100,000
     Route: 058
  2. NITROGEN [Interacting]
     Active Substance: NITROGEN
     Indication: Skin papilloma
     Dosage: TWO 5-10 S FREEZE-THAW CYCLES.
     Route: 061
  3. LISINOPRIL [Concomitant]
     Active Substance: LISINOPRIL
     Indication: Hypertension
     Dosage: 20 MG, 1X/DAY

REACTIONS (4)
  - Drug interaction [Recovered/Resolved]
  - Extremity necrosis [Recovered/Resolved]
  - Dry gangrene [Recovered/Resolved]
  - Injection site reaction [Recovered/Resolved]
